FAERS Safety Report 5748696-6 (Version None)
Quarter: 2008Q2

REPORT INFORMATION
  Report Type: 
  Country: None (occurrence: None)
  Receive Date: 20080521
  Receipt Date: 20080506
  Transmission Date: 20081010
  Serious: Yes (Other)
  Sender: FDA-Public Use
  Company Number: 2008S1007639

PATIENT
  Age: 37 Year
  Sex: Male
  Weight: 53 kg

DRUGS (6)
  1. KALMA (ALPRAZOLAM) [Suspect]
     Indication: ANXIETY
     Dosage: 1 MG; 4 TIMES A DAY;, 1 MG; 4 TIMES A DAY;
     Dates: start: 20030301, end: 20051101
  2. KALMA (ALPRAZOLAM) [Suspect]
     Indication: DEPRESSION
     Dosage: 1 MG; 4 TIMES A DAY;, 1 MG; 4 TIMES A DAY;
     Dates: start: 20030301, end: 20051101
  3. KALMA (ALPRAZOLAM) [Suspect]
     Indication: PANIC DISORDER
     Dosage: 1 MG; 4 TIMES A DAY;, 1 MG; 4 TIMES A DAY;
     Dates: start: 20030301, end: 20051101
  4. KALMA (ALPRAZOLAM) [Suspect]
     Indication: ANXIETY
     Dosage: 1 MG; 4 TIMES A DAY;, 1 MG; 4 TIMES A DAY;
     Dates: start: 20060301
  5. KALMA (ALPRAZOLAM) [Suspect]
     Indication: DEPRESSION
     Dosage: 1 MG; 4 TIMES A DAY;, 1 MG; 4 TIMES A DAY;
     Dates: start: 20060301
  6. KALMA (ALPRAZOLAM) [Suspect]
     Indication: PANIC DISORDER
     Dosage: 1 MG; 4 TIMES A DAY;, 1 MG; 4 TIMES A DAY;
     Dates: start: 20060301

REACTIONS (8)
  - ANXIETY [None]
  - CONFUSIONAL STATE [None]
  - FALL [None]
  - INSOMNIA [None]
  - MEMORY IMPAIRMENT [None]
  - PERIPHERAL COLDNESS [None]
  - SPEECH DISORDER [None]
  - VISION BLURRED [None]
